FAERS Safety Report 17506357 (Version 1)
Quarter: 2020Q1

REPORT INFORMATION
  Report Type: Spontaneous
  Country: US (occurrence: US)
  Receive Date: 20200305
  Receipt Date: 20200305
  Transmission Date: 20200409
  Serious: No
  Sender: FDA-Public Use
  Company Number: US-ROCHE-2424786

PATIENT
  Sex: Female

DRUGS (5)
  1. XOLAIR [Suspect]
     Active Substance: OMALIZUMAB
     Indication: IDIOPATHIC URTICARIA
     Route: 058
  2. SULFASALAZINE. [Concomitant]
     Active Substance: SULFASALAZINE
  3. FLUZONE [INFLUENZA VACCINE] [Concomitant]
     Dosage: 2015 TO 2016
     Route: 065
  4. MONTELUCAST [Concomitant]
     Active Substance: MONTELUKAST SODIUM
  5. FAMOTIDINE. [Concomitant]
     Active Substance: FAMOTIDINE

REACTIONS (1)
  - Malaise [Unknown]
